FAERS Safety Report 13410161 (Version 7)
Quarter: 2017Q4

REPORT INFORMATION
  Report Type: Spontaneous
  Country: US (occurrence: US)
  Receive Date: 20170406
  Receipt Date: 20171211
  Transmission Date: 20180320
  Serious: Yes (Congenital Anomaly, Other)
  Sender: FDA-Public Use
  Company Number: PHEH2017US009893

PATIENT
  Sex: Male

DRUGS (2)
  1. ZOFRAN [Suspect]
     Active Substance: ONDANSETRON HYDROCHLORIDE
     Indication: FOETAL EXPOSURE DURING PREGNANCY
     Route: 064
  2. ONDANSETRONE DR. REDDY^S [Suspect]
     Active Substance: ONDANSETRON HYDROCHLORIDE
     Indication: FOETAL EXPOSURE DURING PREGNANCY
     Dosage: MOTHER DOSE: 01 DF, Q12H
     Route: 064

REACTIONS (27)
  - Right ventricular enlargement [Unknown]
  - Upper respiratory tract infection [Unknown]
  - Dental caries [Unknown]
  - Wheezing [Unknown]
  - Clavicle fracture [Unknown]
  - Pulmonary artery stenosis congenital [Unknown]
  - Left-to-right cardiac shunt [Unknown]
  - Left atrial enlargement [Unknown]
  - Premature baby [Unknown]
  - Foetal exposure during pregnancy [Unknown]
  - Otitis media [Unknown]
  - Atrial septal defect [Unknown]
  - Bronchiolitis [Unknown]
  - Conjunctivitis bacterial [Unknown]
  - Croup infectious [Unknown]
  - Cardiac murmur [Unknown]
  - Bronchial hyperreactivity [Unknown]
  - Rhinitis allergic [Unknown]
  - Bronchitis [Unknown]
  - Viral infection [Unknown]
  - Aphthous ulcer [Unknown]
  - Apnoea [Unknown]
  - Forearm fracture [Unknown]
  - Ear infection [Unknown]
  - Constipation [Unknown]
  - Road traffic accident [Unknown]
  - Urticaria [Unknown]

NARRATIVE: CASE EVENT DATE: 20130405
